FAERS Safety Report 22605039 (Version 5)
Quarter: 2023Q4

REPORT INFORMATION
  Report Type: Spontaneous
  Country: US (occurrence: US)
  Receive Date: 20230615
  Receipt Date: 20231025
  Transmission Date: 20240110
  Serious: No
  Sender: FDA-Public Use
  Company Number: US-PFIZER INC-202300219628

PATIENT
  Age: 3 Year
  Sex: Male
  Weight: 11.8 kg

DRUGS (1)
  1. GENOTROPIN [Suspect]
     Active Substance: SOMATROPIN
     Indication: Silver-Russell syndrome
     Dosage: 0.3 MG, DAILY

REACTIONS (7)
  - Device difficult to use [Unknown]
  - Drug dose omission by device [Unknown]
  - Device malfunction [Unknown]
  - Device breakage [Unknown]
  - Expired device used [Unknown]
  - Device mechanical issue [Unknown]
  - Device dispensing error [Unknown]

NARRATIVE: CASE EVENT DATE: 20230607
